FAERS Safety Report 8053471-6 (Version None)
Quarter: 2012Q1

REPORT INFORMATION
  Report Type: 
  Country: None (occurrence: None)
  Receive Date: 20120118
  Receipt Date: 20120113
  Transmission Date: 20120608
  Serious: Yes (Death, Hospitalization)
  Sender: FDA-Public Use
  Company Number: DE-GLAXOSMITHKLINE-D0074073A

PATIENT
  Sex: Female

DRUGS (6)
  1. ATMADISC [Suspect]
     Indication: CHRONIC OBSTRUCTIVE PULMONARY DISEASE
     Route: 065
     Dates: start: 20110301
  2. BUDECORT [Concomitant]
     Route: 065
  3. VERAPAMIL [Concomitant]
     Route: 065
  4. DIGITOXIN TAB [Concomitant]
     Route: 065
  5. DIURETIC [Concomitant]
     Route: 065
  6. SPIRIVA [Concomitant]
     Route: 065

REACTIONS (6)
  - GENERAL PHYSICAL HEALTH DETERIORATION [None]
  - PALPITATIONS [None]
  - HEART RATE INCREASED [None]
  - DEATH [None]
  - DYSPNOEA [None]
  - DRUG INEFFECTIVE [None]
